FAERS Safety Report 20674728 (Version 3)
Quarter: 2022Q2

REPORT INFORMATION
  Report Type: Report from Study
  Country: CA (occurrence: CA)
  Receive Date: 20220405
  Receipt Date: 20220621
  Transmission Date: 20220720
  Serious: Yes (Hospitalization, Other)
  Sender: FDA-Public Use
  Company Number: CA-JNJFOC-20211150121

PATIENT
  Age: 33 Year
  Sex: Female

DRUGS (1)
  1. REMICADE [Suspect]
     Active Substance: INFLIXIMAB
     Indication: Crohn^s disease
     Route: 042

REACTIONS (5)
  - Respiratory syncytial virus infection [Recovered/Resolved]
  - Premature separation of placenta [Recovering/Resolving]
  - Exposure during pregnancy [Recovered/Resolved]
  - Cough [Recovered/Resolved]
  - Serum ferritin decreased [Not Recovered/Not Resolved]

NARRATIVE: CASE EVENT DATE: 20210101
